FAERS Safety Report 5761237-2 (Version None)
Quarter: 2008Q2

REPORT INFORMATION
  Report Type: 
  Country: None (occurrence: None)
  Receive Date: 20080606
  Receipt Date: 20080530
  Transmission Date: 20081010
  Serious: Yes (Other)
  Sender: FDA-Public Use
  Company Number: PHHY2008BR09514

PATIENT
  Age: 49 Year
  Sex: Female

DRUGS (2)
  1. ESTRADERM [Suspect]
     Indication: IN VITRO FERTILISATION
     Dosage: 200MCG/DAY
     Route: 062
     Dates: start: 20070227
  2. CRINONE [Concomitant]
     Indication: IN VITRO FERTILISATION
     Dosage: UNK

REACTIONS (2)
  - CAESAREAN SECTION [None]
  - DRUG EXPOSURE DURING PREGNANCY [None]
